FAERS Safety Report 21171619 (Version 1)
Quarter: 2022Q3

REPORT INFORMATION
  Report Type: Report from Study
  Country: CA (occurrence: CA)
  Receive Date: 20220804
  Receipt Date: 20220804
  Transmission Date: 20221027
  Serious: Yes (Hospitalization, Other)
  Sender: FDA-Public Use
  Company Number: CA-JNJFOC-20210620411

PATIENT
  Age: 3 Decade
  Sex: Female
  Weight: 84.4 kg

DRUGS (3)
  1. REMICADE [Suspect]
     Active Substance: INFLIXIMAB
     Indication: Crohn^s disease
     Dosage: EXP: MAR-2024?LLM72013
     Route: 042
     Dates: start: 20210301
  2. SOLU-CORTEF [Concomitant]
     Active Substance: HYDROCORTISONE SODIUM SUCCINATE
     Indication: Premedication
     Route: 065
  3. TYLENOL [Concomitant]
     Active Substance: ACETAMINOPHEN
     Indication: Premedication
     Route: 065

REACTIONS (17)
  - Pharyngitis streptococcal [Recovered/Resolved]
  - Haematemesis [Unknown]
  - Faecal vomiting [Unknown]
  - Abdominal pain upper [Not Recovered/Not Resolved]
  - Respiration abnormal [Recovered/Resolved]
  - Diarrhoea [Not Recovered/Not Resolved]
  - Infusion related reaction [Recovered/Resolved]
  - Adhesion [Unknown]
  - COVID-19 [Unknown]
  - Chest discomfort [Unknown]
  - Dyspnoea [Unknown]
  - Cough [Unknown]
  - Nausea [Unknown]
  - Abdominal discomfort [Not Recovered/Not Resolved]
  - Therapeutic product effect decreased [Unknown]
  - Sinusitis [Recovered/Resolved]
  - Off label use [Unknown]

NARRATIVE: CASE EVENT DATE: 20210501
